FAERS Safety Report 21372641 (Version 2)
Quarter: 2023Q2

REPORT INFORMATION
  Report Type: Spontaneous
  Country: DE (occurrence: DE)
  Receive Date: 20220924
  Receipt Date: 20230504
  Transmission Date: 20230722
  Serious: Yes (Hospitalization)
  Sender: FDA-Public Use
  Company Number: None

PATIENT
  Age: 79 Year
  Sex: Female
  Weight: 80 kg

DRUGS (6)
  1. METOPROLOL [Interacting]
     Active Substance: METOPROLOL
     Indication: Product used for unknown indication
     Dosage: 47.5 MG, 0-0-0.5-0
     Route: 048
  2. CITALOPRAM [Interacting]
     Active Substance: CITALOPRAM HYDROBROMIDE
     Indication: Product used for unknown indication
     Dosage: 20 MG, 0.5-0-0-0
     Route: 048
  3. LEVETIRACETAM [Interacting]
     Active Substance: LEVETIRACETAM
     Indication: Product used for unknown indication
     Dosage: 0-0-1-0
     Route: 048
  4. RIVAROXABAN [Suspect]
     Active Substance: RIVAROXABAN
     Indication: Product used for unknown indication
     Dosage: 1-0-0-0
     Route: 048
  5. CANDESARTAN [Concomitant]
     Active Substance: CANDESARTAN
     Indication: Product used for unknown indication
     Dosage: 1-0-1-0
     Route: 048
  6. LACOSAMIDE [Concomitant]
     Active Substance: LACOSAMIDE
     Indication: Product used for unknown indication
     Dosage: 1-0-0-0
     Route: 048

REACTIONS (6)
  - Chest pain [Unknown]
  - Dyspnoea exertional [Unknown]
  - Pain [Unknown]
  - Product prescribing error [Unknown]
  - Tachycardia [Unknown]
  - Labelled drug-drug interaction medication error [Unknown]
